FAERS Safety Report 4834519-6 (Version None)
Quarter: 2005Q4

REPORT INFORMATION
  Report Type: 
  Country: None (occurrence: None)
  Receive Date: 20051122
  Receipt Date: 20050124
  Transmission Date: 20060501
  Serious: No
  Sender: FDA-Public Use
  Company Number: US-BRISTOL-MYERS SQUIBB COMPANY-12835997

PATIENT
  Age: 72 Year
  Sex: Female
  Weight: 65 kg

DRUGS (10)
  1. PRAVACHOL [Suspect]
     Indication: LIPIDS INCREASED
     Route: 048
     Dates: start: 19930101
  2. ECOTRIN [Concomitant]
  3. FOSAMAX [Concomitant]
  4. AMBIEN [Concomitant]
  5. CALCIUM GLUCONATE [Concomitant]
  6. ESTER-C [Concomitant]
  7. LUTEIN [Concomitant]
  8. VITAMIN B COMPLEX CAP [Concomitant]
  9. FISH OIL [Concomitant]
     Dosage: DOSAGE FORM = CAPSULE
  10. FOLIC ACID [Concomitant]

REACTIONS (3)
  - BRONCHITIS [None]
  - INFLUENZA LIKE ILLNESS [None]
  - TINNITUS [None]
